FAERS Safety Report 6538989-7 (Version None)
Quarter: 2010Q1

REPORT INFORMATION
  Report Type: 
  Country: None (occurrence: None)
  Receive Date: 20100114
  Receipt Date: 20100114
  Transmission Date: 20100710
  Serious: Yes (Other)
  Sender: FDA-Public Use
  Company Number: None

PATIENT
  Age: 29 Year
  Sex: Male
  Weight: 85.2762 kg

DRUGS (1)
  1. CLEAR EYES REDNESS RELIEF .5 FL OZ MEDTECH PRODUCTS/PRESTIGE [Suspect]
     Indication: OCULAR HYPERAEMIA

REACTIONS (3)
  - DRUG DEPENDENCE [None]
  - INTENTIONAL DRUG MISUSE [None]
  - QUALITY OF LIFE DECREASED [None]
